FAERS Safety Report 24048310 (Version 1)
Quarter: 2024Q3

REPORT INFORMATION
  Report Type: Report from Study
  Country: US (occurrence: US)
  Receive Date: 20240704
  Receipt Date: 20240704
  Transmission Date: 20241017
  Serious: Yes (Hospitalization)
  Sender: ETON PHARMACEUTICALS
  Company Number: US-ETON PHARMACEUTICALS, INC-2024ETO000148

PATIENT

DRUGS (2)
  1. ALKINDI SPRINKLE [Suspect]
     Active Substance: HYDROCORTISONE
     Indication: Adrenocortical insufficiency neonatal
     Dosage: 1 MILLIGRAM, Q8H
     Route: 048
     Dates: start: 20240312, end: 20240611
  2. ALKINDI SPRINKLE [Suspect]
     Active Substance: HYDROCORTISONE
     Dosage: 3 MILLIGRAM STRESS DOSING (TOTAL 3 DOSES)
     Route: 065
     Dates: start: 202406, end: 20240621

REACTIONS (2)
  - Seasonal allergy [Unknown]
  - Urinary tract infection [Not Recovered/Not Resolved]

NARRATIVE: CASE EVENT DATE: 20240611
